FAERS Safety Report 7370129-7 (Version None)
Quarter: 2011Q1

REPORT INFORMATION
  Report Type: 
  Country: None (occurrence: None)
  Receive Date: 20110323
  Receipt Date: 20110314
  Transmission Date: 20110831
  Serious: Yes (Hospitalization)
  Sender: FDA-Public Use
  Company Number: US-ASTRAZENECA-2011SE14086

PATIENT
  Age: 47 Year
  Sex: Female

DRUGS (3)
  1. THYROID [Concomitant]
  2. VITAMIN D [Concomitant]
  3. NEXIUM [Suspect]
     Indication: GASTROOESOPHAGEAL REFLUX DISEASE
     Route: 048
     Dates: start: 20100101, end: 20110314

REACTIONS (11)
  - ABDOMINAL DISTENSION [None]
  - CHOLECYSTECTOMY [None]
  - EPISTAXIS [None]
  - RASH [None]
  - LIP SWELLING [None]
  - URTICARIA [None]
  - MUSCLE SPASMS [None]
  - DRY MOUTH [None]
  - VOMITING [None]
  - SWOLLEN TONGUE [None]
  - HEADACHE [None]
